FAERS Safety Report 9531418 (Version 1)
Quarter: 2013Q2

REPORT INFORMATION
  Report Type: Spontaneous
  Country: US (occurrence: None)
  Receive Date: 20130503
  Receipt Date: 20130503
  Transmission Date: 20140414
  Serious: No
  Sender: FDA-Public Use
  Company Number: 1000043440

PATIENT
  Age: 69 Year
  Sex: Male

DRUGS (7)
  1. DALIRESP (ROFLUMILAST) (500 MICROGRAM, TABLETS) [Suspect]
     Indication: CHRONIC OBSTRUCTIVE PULMONARY DISEASE
     Route: 048
     Dates: start: 201301, end: 201301
  2. DIOVAN (VALSARTAN) [Concomitant]
  3. DIGOXIN [Concomitant]
  4. WARFARIN [Concomitant]
  5. VERAPAMIL [Concomitant]
  6. TOPROL (METOPROLOL SUCCINATE) [Concomitant]
  7. CHLORTRIMETON (CHLORPHENAMINE MALEATE) [Concomitant]

REACTIONS (2)
  - Heart rate increased [None]
  - Asthenia [None]
